FAERS Safety Report 19582125 (Version 1)
Quarter: 2021Q3

REPORT INFORMATION
  Report Type: Spontaneous
  Country: US (occurrence: US)
  Receive Date: 20210715
  Receipt Date: 20210715
  Transmission Date: 20211014
  Serious: No
  Sender: FDA-Public Use
  Company Number: None

PATIENT
  Age: 65 Year
  Sex: Female
  Weight: 84 kg

DRUGS (1)
  1. CASIRIVIMAB/IMDEVIMAB [Suspect]
     Active Substance: CASIRIVIMAB\IMDEVIMAB
     Indication: COVID-19
     Dates: start: 20210713, end: 20210713

REACTIONS (5)
  - Erythema [None]
  - Pyrexia [None]
  - Pruritus [None]
  - Rash macular [None]
  - Chills [None]

NARRATIVE: CASE EVENT DATE: 20210713
